FAERS Safety Report 12188642 (Version 5)
Quarter: 2017Q1

REPORT INFORMATION
  Report Type: Report from Study
  Country: JP (occurrence: JP)
  Receive Date: 20160317
  Receipt Date: 20170221
  Transmission Date: 20170428
  Serious: Yes (Other)
  Sender: FDA-Public Use
  Company Number: JP-INCYTE CORPORATION-2016IN001528

PATIENT
  Age: 53 Year
  Sex: Male

DRUGS (5)
  1. RED CELLS CONCENTRATES-LEUKOCYTES REDUCED [Concomitant]
     Indication: MYELOFIBROSIS
     Dosage: 2 IU, UNK
     Route: 042
  2. JAKAVI [Suspect]
     Active Substance: RUXOLITINIB
     Dosage: 15 MG, BID
     Route: 048
     Dates: start: 20160204, end: 20160624
  3. RED CELLS CONCENTRATES-LEUKOCYTES REDUCED [Concomitant]
     Dosage: 2 IU, UNK
     Route: 042
  4. JAKAVI [Suspect]
     Active Substance: RUXOLITINIB
     Dosage: 17.5 MG, BID
     Route: 048
     Dates: start: 20160625
  5. JAKAVI [Suspect]
     Active Substance: RUXOLITINIB
     Indication: MYELOFIBROSIS
     Dosage: 10 MG, BID
     Route: 048
     Dates: start: 20160119, end: 20160203

REACTIONS (3)
  - Platelet count decreased [Not Recovered/Not Resolved]
  - Pneumonia [Recovering/Resolving]
  - Haemoglobin decreased [Unknown]

NARRATIVE: CASE EVENT DATE: 20160221
